FAERS Safety Report 4993770-5 (Version None)
Quarter: 2006Q2

REPORT INFORMATION
  Report Type: 
  Country: None (occurrence: None)
  Receive Date: 20060503
  Receipt Date: 20060503
  Transmission Date: 20061013
  Serious: Yes (Life-Threatening, Hospitalization, Other)
  Sender: FDA-Public Use
  Company Number: None

PATIENT
  Age: 45 Year
  Sex: Female
  Weight: 77.1115 kg

DRUGS (2)
  1. CIPRO [Suspect]
     Indication: CYSTITIS
     Dosage: 1 A DAY 1 PILL PO
     Route: 048
     Dates: start: 20060306, end: 20060308
  2. LEVAQUIN [Suspect]
     Indication: CYSTITIS
     Dosage: 1 A DAY 1 PILL PO
     Route: 048
     Dates: start: 20060308, end: 20060308

REACTIONS (12)
  - ABDOMINAL PAIN UPPER [None]
  - ANXIETY [None]
  - ARTHRALGIA [None]
  - BURNING SENSATION [None]
  - CONFUSIONAL STATE [None]
  - HEART RATE IRREGULAR [None]
  - HYPOAESTHESIA [None]
  - INSOMNIA [None]
  - MOOD SWINGS [None]
  - PARAESTHESIA [None]
  - RESTLESSNESS [None]
  - TREMOR [None]
